FAERS Safety Report 8302897-1 (Version None)
Quarter: 2012Q2

REPORT INFORMATION
  Report Type: 
  Country: None (occurrence: None)
  Receive Date: 20120420
  Receipt Date: 20120411
  Transmission Date: 20120825
  Serious: Yes (Death, Hospitalization)
  Sender: FDA-Public Use
  Company Number: GB-PFIZER INC-2012075639

PATIENT
  Age: 67 Year
  Sex: Male
  Weight: 85 kg

DRUGS (4)
  1. EPIRUBICIN HYDROCHLORIDE [Suspect]
     Indication: GASTRIC CANCER
     Dosage: 50 MG, UNK
     Route: 042
     Dates: start: 20110922
  2. BEVACIZUMAB [Suspect]
     Indication: GASTRIC CANCER
     Dosage: 655 MG, UNK
     Route: 042
     Dates: start: 20110922
  3. CISPLATIN [Suspect]
     Indication: GASTRIC CANCER
     Dosage: 120 MG, UNK
     Route: 042
     Dates: start: 20110922
  4. CAPECITABINE [Suspect]
     Indication: GASTRIC CANCER
     Dosage: 5250 MG, UNK
     Route: 048
     Dates: start: 20110922

REACTIONS (2)
  - POST PROCEDURAL HAEMORRHAGE [None]
  - GASTROINTESTINAL ANASTOMOTIC LEAK [None]
